FAERS Safety Report 14619496 (Version 2)
Quarter: 2019Q3

REPORT INFORMATION
  Report Type: Spontaneous
  Country: DE (occurrence: DE)
  Receive Date: 20180309
  Receipt Date: 20190913
  Transmission Date: 20191004
  Serious: Yes (Other)
  Sender: FDA-Public Use
  Company Number: DE-AUROBINDO-AUR-APL-2018-012009

PATIENT
  Age: 78 Year
  Sex: Male
  Weight: 64 kg

DRUGS (7)
  1. XELODA [Suspect]
     Active Substance: CAPECITABINE
     Indication: COLON CANCER METASTATIC
     Dosage: 200 MILLIGRAM/SQ. METER
     Route: 048
  2. XELODA [Suspect]
     Active Substance: CAPECITABINE
     Dosage: 2500 MILLIGRAM/SQ. METER
     Route: 048
  3. ASPIRIN. [Concomitant]
     Active Substance: ASPIRIN
     Indication: PRODUCT USED FOR UNKNOWN INDICATION
     Dosage: 100 MILLIGRAM
     Route: 048
  4. RAMIPRIL. [Suspect]
     Active Substance: RAMIPRIL
     Indication: HYPERTENSION
     Dosage: 150 MILLIGRAM
     Route: 048
  5. AVASTIN [Suspect]
     Active Substance: BEVACIZUMAB
     Dosage: UNK
     Route: 042
     Dates: start: 20090428, end: 20090428
  6. VERGENTAN [Concomitant]
     Active Substance: ALIZAPRIDE HYDROCHLORIDE
     Indication: PROPHYLAXIS
     Dosage: 150 MILLIGRAM
     Route: 048
  7. AVASTIN [Suspect]
     Active Substance: BEVACIZUMAB
     Indication: COLON CANCER METASTATIC
     Dosage: 487.5 MILLIGRAM
     Route: 042

REACTIONS (3)
  - Proteinuria [Unknown]
  - Nephrotic syndrome [Not Recovered/Not Resolved]
  - Renal impairment [Unknown]

NARRATIVE: CASE EVENT DATE: 20090519
